FAERS Safety Report 23942959 (Version 1)
Quarter: 2024Q2

REPORT INFORMATION
  Report Type: Report from Study
  Country: AT (occurrence: AT)
  Receive Date: 20240605
  Receipt Date: 20240605
  Transmission Date: 20240716
  Serious: Yes (Death, Hospitalization)
  Sender: FDA-Public Use
  Company Number: AT-002147023-NVSC2024AT117489

PATIENT
  Age: 71 Year
  Sex: Male

DRUGS (1)
  1. LEQVIO [Suspect]
     Active Substance: INCLISIRAN SODIUM
     Indication: Hypercholesterolaemia
     Dosage: 284 MG
     Route: 058
     Dates: start: 20230911, end: 20240303

REACTIONS (1)
  - Pneumonia [Fatal]
